FAERS Safety Report 15281253 (Version 2)
Quarter: 2018Q3

REPORT INFORMATION
  Report Type: Spontaneous
  Country: US (occurrence: US)
  Receive Date: 20180815
  Receipt Date: 20180905
  Transmission Date: 20181010
  Serious: Yes (Hospitalization, Other)
  Sender: FDA-Public Use
  Company Number: US-SA-2018SA155950

PATIENT
  Age: 82 Year
  Sex: Female

DRUGS (1)
  1. SALICYLIC ACID. [Suspect]
     Active Substance: SALICYLIC ACID

REACTIONS (12)
  - Toxicity to various agents [Recovering/Resolving]
  - Respiratory alkalosis [Recovering/Resolving]
  - Metabolic acidosis [Recovering/Resolving]
  - Mental status changes [Recovering/Resolving]
  - Drug level [Recovering/Resolving]
  - Confusional state [Recovering/Resolving]
  - Dehydration [Recovering/Resolving]
  - Hyperventilation [Recovering/Resolving]
  - Asthenia [Recovering/Resolving]
  - Cognitive disorder [Recovering/Resolving]
  - Disorientation [Recovering/Resolving]
  - Coagulopathy [Recovering/Resolving]
